FAERS Safety Report 7252798-5 (Version None)
Quarter: 2011Q1

REPORT INFORMATION
  Report Type: 
  Country: None (occurrence: None)
  Receive Date: 20110129
  Receipt Date: 20100120
  Transmission Date: 20110831
  Serious: No
  Sender: FDA-Public Use
  Company Number: US-ABBOTT-10P-163-0621917-00

PATIENT
  Sex: Male
  Weight: 79.45 kg

DRUGS (3)
  1. UNKNOWN BLOOD PRESSURE MEDICATION [Concomitant]
     Indication: HYPERTENSION
  2. HUMIRA [Suspect]
     Indication: PSORIASIS
     Dates: start: 20090801
  3. UNKNOWN CHOLESTEROL MEDICATION [Concomitant]
     Indication: HYPERCHOLESTEROLAEMIA

REACTIONS (3)
  - DRUG DOSE OMISSION [None]
  - DRUG EFFECT DECREASED [None]
  - PSORIASIS [None]
